FAERS Safety Report 10386631 (Version 1)
Quarter: 2014Q3

REPORT INFORMATION
  Report Type: Spontaneous
  Country: US (occurrence: None)
  Receive Date: 20140814
  Receipt Date: 20140814
  Transmission Date: 20150326
  Serious: No
  Sender: FDA-Public Use
  Company Number: None

PATIENT
  Sex: Female

DRUGS (1)
  1. IUD NOS [Suspect]
     Active Substance: COPPER OR LEVONORGESTREL

REACTIONS (3)
  - Haemorrhage [None]
  - Uterine leiomyoma [None]
  - Menometrorrhagia [None]
